FAERS Safety Report 4854546-2 (Version None)
Quarter: 2005Q4

REPORT INFORMATION
  Report Type: 
  Country: None (occurrence: None)
  Receive Date: 20051215
  Receipt Date: 20051122
  Transmission Date: 20060501
  Serious: Yes (Life-Threatening)
  Sender: FDA-Public Use
  Company Number: JP-ROCHE-426198

PATIENT
  Age: 58 Year
  Sex: Male

DRUGS (3)
  1. PEGASYS [Suspect]
     Route: 058
     Dates: start: 20050930, end: 20051028
  2. LOXOPROFEN SODIUM [Suspect]
     Indication: PYREXIA
     Route: 048
     Dates: start: 20050930
  3. LOXOPROFEN SODIUM [Suspect]
     Route: 048
     Dates: start: 20050930

REACTIONS (2)
  - DEPRESSED LEVEL OF CONSCIOUSNESS [None]
  - GRAND MAL CONVULSION [None]
